FAERS Safety Report 14133589 (Version 3)
Quarter: 2018Q1

REPORT INFORMATION
  Report Type: Spontaneous
  Country: JP (occurrence: JP)
  Receive Date: 20171026
  Receipt Date: 20180117
  Transmission Date: 20180508
  Serious: Yes (Death, Other)
  Sender: FDA-Public Use
  Company Number: JP-CELGENEUS-JPN-20171006708

PATIENT
  Age: 69 Year
  Sex: Female

DRUGS (1)
  1. REVLIMID [Suspect]
     Active Substance: LENALIDOMIDE
     Indication: ADULT T-CELL LYMPHOMA/LEUKAEMIA
     Dosage: 10 MILLIGRAM
     Route: 048
     Dates: start: 20170308, end: 201703

REACTIONS (9)
  - Hypercalcaemia [Not Recovered/Not Resolved]
  - Blood potassium increased [Unknown]
  - Skin mass [Not Recovered/Not Resolved]
  - Rash [Unknown]
  - Altered state of consciousness [Not Recovered/Not Resolved]
  - C-reactive protein increased [Unknown]
  - Renal disorder [Unknown]
  - Lymphadenopathy [Not Recovered/Not Resolved]
  - Adult T-cell lymphoma/leukaemia [Fatal]

NARRATIVE: CASE EVENT DATE: 20170314
